FAERS Safety Report 5842109-1 (Version None)
Quarter: 2008Q3

REPORT INFORMATION
  Report Type: 
  Country: None (occurrence: None)
  Receive Date: 20080812
  Receipt Date: 20080801
  Transmission Date: 20090109
  Serious: Yes (Life-Threatening, Other)
  Sender: FDA-Public Use
  Company Number: US-JNJFOC-20080602094

PATIENT
  Sex: Male
  Weight: 72.12 kg

DRUGS (9)
  1. INVEGA [Suspect]
     Route: 048
  2. INVEGA [Suspect]
     Route: 048
  3. INVEGA [Suspect]
     Indication: AGGRESSION
     Route: 048
  4. NEXIUM [Concomitant]
     Indication: GASTROOESOPHAGEAL REFLUX DISEASE
  5. BUSPAR [Concomitant]
  6. BUSPAR [Concomitant]
     Indication: ABNORMAL BEHAVIOUR
  7. SYNTHROID [Concomitant]
     Indication: HYPOTHYROIDISM
  8. GABAPENTIN [Concomitant]
  9. GABAPENTIN [Concomitant]
     Indication: ABNORMAL BEHAVIOUR

REACTIONS (4)
  - HEADACHE [None]
  - HEPATIC ENZYME INCREASED [None]
  - SOMNOLENCE [None]
  - TREMOR [None]
